FAERS Safety Report 9943521 (Version 2)
Quarter: 2014Q1

REPORT INFORMATION
  Report Type: Report from Study
  Country: US (occurrence: US)
  Receive Date: 20140303
  Receipt Date: 20140303
  Transmission Date: 20141002
  Serious: No
  Sender: FDA-Public Use
  Company Number: US-ABBVIE-12P-163-1019564-00

PATIENT
  Age: 25 Year
  Sex: Female

DRUGS (6)
  1. HUMIRA [Suspect]
     Indication: CROHN^S DISEASE
     Dates: start: 201209
  2. BIRTH CONTROL [Concomitant]
     Dosage: PILLS
  3. BIOTIN [Concomitant]
     Indication: ALOPECIA
     Dosage: DAILY
  4. STOOL SOFTENER [Concomitant]
     Indication: CONSTIPATION PROPHYLAXIS
     Dosage: DAILY
  5. COLACE [Concomitant]
     Indication: CONSTIPATION PROPHYLAXIS
  6. BIRTH CONTROL PILL [Concomitant]
     Indication: PRODUCT USED FOR UNKNOWN INDICATION

REACTIONS (6)
  - Fatigue [Not Recovered/Not Resolved]
  - Rash pruritic [Recovered/Resolved]
  - Arthralgia [Recovered/Resolved]
  - Injection site reaction [Not Recovered/Not Resolved]
  - Stress [Not Recovered/Not Resolved]
  - Fistula [Not Recovered/Not Resolved]
